FAERS Safety Report 5652684-8 (Version None)
Quarter: 2008Q1

REPORT INFORMATION
  Report Type: 
  Country: None (occurrence: None)
  Receive Date: 20080131
  Receipt Date: 20070928
  Transmission Date: 20080703
  Serious: No
  Sender: FDA-Public Use
  Company Number: US200710000152

PATIENT
  Age: 58 Year
  Sex: Female
  Weight: 108.4 kg

DRUGS (7)
  1. BYETTA [Suspect]
     Indication: INSULIN-REQUIRING TYPE 2 DIABETES MELLITUS
     Dosage: 5 UG, 2/D, SUBCUTANEOUS
     Route: 058
     Dates: start: 20070801
  2. LANTUS [Concomitant]
  3. METFORMIN HCL [Concomitant]
  4. AVALIDE [Concomitant]
  5. NIFEDICAL (NIFEDIPINE) [Concomitant]
  6. SERTRALINE HYDROCHLORIDE [Concomitant]
  7. ACTOS /USA/ (PIOGLITAZONE HYDROCHLORIDE) [Concomitant]

REACTIONS (5)
  - DECREASED APPETITE [None]
  - INJECTION SITE BRUISING [None]
  - RASH PRURITIC [None]
  - SCAB [None]
  - WEIGHT DECREASED [None]
